FAERS Safety Report 14105185 (Version 3)
Quarter: 2018Q1

REPORT INFORMATION
  Report Type: Spontaneous
  Country: JP (occurrence: JP)
  Receive Date: 20171018
  Receipt Date: 20180314
  Transmission Date: 20180508
  Serious: Yes (Hospitalization, Other)
  Sender: FDA-Public Use
  Company Number: JP-MALLINCKRODT-T201704079

PATIENT
  Age: 24 Year
  Sex: Female
  Weight: 57 kg

DRUGS (5)
  1. OFIRMEV [Suspect]
     Active Substance: ACETAMINOPHEN
     Indication: ANALGESIC THERAPY
     Dosage: 1000 MG, 1/1 DAY
     Route: 042
     Dates: start: 20160714, end: 20160714
  2. OFIRMEV [Suspect]
     Active Substance: ACETAMINOPHEN
     Dosage: 1000 MG
     Route: 042
     Dates: start: 20160724, end: 20170724
  3. MIDAZOLAM [Suspect]
     Active Substance: MIDAZOLAM HYDROCHLORIDE
     Indication: INDUCTION OF ANAESTHESIA
     Dosage: 3 MG
     Route: 042
     Dates: start: 20160714, end: 20160714
  4. VICCILLIN [Suspect]
     Active Substance: AMPICILLIN
     Indication: PRODUCT USED FOR UNKNOWN INDICATION
     Dosage: 1 G
     Route: 042
     Dates: start: 20160714, end: 20160714
  5. PROPOFOL. [Suspect]
     Active Substance: PROPOFOL
     Indication: INDUCTION OF ANAESTHESIA
     Dosage: 170 MG
     Route: 042
     Dates: start: 20160714, end: 20160714

REACTIONS (8)
  - Prurigo [Recovered/Resolved]
  - Breath sounds abnormal [Unknown]
  - Anaphylactic reaction [Recovered/Resolved]
  - Oedema [Unknown]
  - Abdominal pain [Unknown]
  - Erythema [Recovered/Resolved]
  - Dyspnoea [Unknown]
  - Rash [Recovered/Resolved]

NARRATIVE: CASE EVENT DATE: 20160714
